FAERS Safety Report 7864114-6 (Version None)
Quarter: 2011Q4

REPORT INFORMATION
  Report Type: 
  Country: None (occurrence: None)
  Receive Date: 20111028
  Receipt Date: 20111018
  Transmission Date: 20120403
  Serious: Yes (Hospitalization, Other)
  Sender: FDA-Public Use
  Company Number: US-US-EMD SERONO, INC.-231959J10USA

PATIENT
  Sex: Female
  Weight: 123 kg

DRUGS (4)
  1. INSULIN [Concomitant]
     Indication: DIABETES MELLITUS
  2. REBIF [Suspect]
     Route: 058
     Dates: start: 20050101
  3. REBIF [Suspect]
     Indication: MULTIPLE SCLEROSIS
     Route: 058
     Dates: start: 20040101, end: 20050101
  4. REBIF [Suspect]
     Route: 058
     Dates: start: 20101217

REACTIONS (14)
  - MONARTHRITIS [None]
  - ANXIETY [None]
  - FALL [None]
  - CEREBROVASCULAR ACCIDENT [None]
  - INJECTION SITE MASS [None]
  - CHEST PAIN [None]
  - DYSPNOEA [None]
  - ROAD TRAFFIC ACCIDENT [None]
  - MEMORY IMPAIRMENT [None]
  - INJECTION SITE URTICARIA [None]
  - CELLULITIS [None]
  - POOR PERIPHERAL CIRCULATION [None]
  - LIVER DISORDER [None]
  - LIGAMENT RUPTURE [None]
